FAERS Safety Report 9191233 (Version 2)
Quarter: 2013Q4

REPORT INFORMATION
  Report Type: Spontaneous
  Country: IT (occurrence: IT)
  Receive Date: 20130326
  Receipt Date: 20131202
  Transmission Date: 20140711
  Serious: Yes (Hospitalization, Other)
  Sender: FDA-Public Use
  Company Number: IT-UCBSA-081204

PATIENT
  Age: 28 Year
  Sex: Male

DRUGS (5)
  1. KEPPRA [Suspect]
     Indication: POST-TRAUMATIC EPILEPSY
     Route: 048
     Dates: start: 20130101, end: 20130302
  2. COUMADIN [Concomitant]
     Dosage: 5MG TABLETS, 30 TABLETS
     Route: 048
  3. EPARMEFOLIN [Concomitant]
     Dosage: 6 AMPOULES POWDER + 6 AMPOULE SOLVENT 1.5 ML
  4. LEVOFOLENE [Concomitant]
     Dosage: 7.5MG TABLETS, 10 TABLETS
  5. DELTACORTENE [Concomitant]
     Dosage: 25MG TABLETS, 10 TABLETS

REACTIONS (5)
  - Asthenia [Recovered/Resolved]
  - Hyponatraemia [Recovered/Resolved]
  - Pyrexia [Recovered/Resolved]
  - Bartter^s syndrome [Recovered/Resolved]
  - Hypernatraemia [Recovered/Resolved]
